FAERS Safety Report 16466141 (Version 1)
Quarter: 2019Q2

REPORT INFORMATION
  Report Type: Spontaneous
  Country: US (occurrence: US)
  Receive Date: 20190621
  Receipt Date: 20190621
  Transmission Date: 20190711
  Serious: No
  Sender: FDA-Public Use
  Company Number: US-ACORDA-ACO_159283_2019

PATIENT
  Sex: Male
  Weight: 68.03 kg

DRUGS (1)
  1. INBRIJA [Suspect]
     Active Substance: LEVODOPA
     Indication: PARKINSON^S DISEASE
     Dosage: 84 MILLIGRAM (2 CAPSULES OF 42MG) UP TO FIVE TIMES PER DAY AS NEEDED
     Dates: start: 2019

REACTIONS (2)
  - Foreign body in respiratory tract [Unknown]
  - Device issue [Unknown]
